FAERS Safety Report 5978555-5 (Version None)
Quarter: 2008Q4

REPORT INFORMATION
  Report Type: 
  Country: None (occurrence: None)
  Receive Date: 20081204
  Receipt Date: 20081126
  Transmission Date: 20090506
  Serious: Yes (Other)
  Sender: FDA-Public Use
  Company Number: A0679366A

PATIENT
  Sex: Female

DRUGS (2)
  1. PAXIL [Suspect]
     Indication: DRUG USE FOR UNKNOWN INDICATION
     Route: 048
  2. VITAMIN TAB [Concomitant]

REACTIONS (22)
  - APNOEA [None]
  - ATRIAL SEPTAL DEFECT [None]
  - AUTISM [None]
  - BLINDNESS [None]
  - BRADYCARDIA [None]
  - BREECH PRESENTATION [None]
  - BRONCHOPULMONARY DYSPLASIA [None]
  - CAESAREAN SECTION [None]
  - CONGENITAL ANOMALY [None]
  - CONJUNCTIVITIS [None]
  - CONVULSION [None]
  - DEVELOPMENTAL DELAY [None]
  - DRUG EXPOSURE DURING PREGNANCY [None]
  - FAILURE TO THRIVE [None]
  - LUNG DISORDER [None]
  - LUNG INFILTRATION [None]
  - PATENT DUCTUS ARTERIOSUS [None]
  - PLACENTAL INFARCTION [None]
  - PREMATURE BABY [None]
  - PULMONARY VALVE STENOSIS [None]
  - RESPIRATORY DISTRESS [None]
  - RETINITIS [None]
